FAERS Safety Report 7050428-9 (Version None)
Quarter: 2010Q4

REPORT INFORMATION
  Report Type: 
  Country: None (occurrence: None)
  Receive Date: 20101018
  Receipt Date: 20101008
  Transmission Date: 20110411
  Serious: Yes (Other)
  Sender: FDA-Public Use
  Company Number: AU-ELI_LILLY_AND_COMPANY-AU201003005841

PATIENT
  Sex: Female

DRUGS (7)
  1. FORTEO [Suspect]
     Indication: OSTEOPOROSIS
     Dosage: 20 UG, DAILY (1/D)
     Route: 058
     Dates: start: 20090813
  2. FORTEO [Suspect]
     Dosage: UNK, UNKNOWN
     Route: 065
     Dates: end: 20100101
  3. OXYCONTIN [Concomitant]
     Indication: PAIN
     Dosage: UNK, UNK
  4. LIVIAL [Concomitant]
  5. MOGADON [Concomitant]
     Indication: SLEEP DISORDER
  6. DIAZEPAM [Concomitant]
     Indication: ANXIETY
  7. EFFEXOR [Concomitant]
     Dosage: 150 D/F, UNK

REACTIONS (8)
  - FATIGUE [None]
  - HYPOPHAGIA [None]
  - MALAISE [None]
  - MALNUTRITION [None]
  - NAUSEA [None]
  - RETCHING [None]
  - VOMITING [None]
  - WEIGHT DECREASED [None]
